FAERS Safety Report 14915401 (Version 2)
Quarter: 2020Q3

REPORT INFORMATION
  Report Type: Report from Study
  Country: US (occurrence: US)
  Receive Date: 20180518
  Receipt Date: 20200907
  Transmission Date: 20201102
  Serious: Yes (Hospitalization, Other)
  Sender: FDA-Public Use
  Company Number: US-BAUSCH-BL-2018-014059

PATIENT
  Age: 57 Year
  Sex: Female

DRUGS (4)
  1. APRISO [Suspect]
     Active Substance: MESALAMINE
     Indication: PRODUCT USE IN UNAPPROVED INDICATION
     Route: 048
     Dates: end: 20200822
  2. APRISO [Suspect]
     Active Substance: MESALAMINE
     Indication: CROHN^S DISEASE
     Route: 048
     Dates: start: 2012
  3. XIFAXAN [Suspect]
     Active Substance: RIFAXIMIN
     Indication: HEPATIC ENCEPHALOPATHY
     Route: 048
     Dates: start: 20200816, end: 20200822
  4. XIFAXAN [Suspect]
     Active Substance: RIFAXIMIN
     Indication: PORTAL SHUNT PROCEDURE
     Route: 048
     Dates: start: 2008, end: 20200815

REACTIONS (14)
  - Muscle spasms [Unknown]
  - Pain [Unknown]
  - Dyspnoea [Unknown]
  - Treatment noncompliance [Unknown]
  - Hospitalisation [Unknown]
  - Gastrointestinal ulcer haemorrhage [Unknown]
  - Diarrhoea [Unknown]
  - Therapy interrupted [Unknown]
  - Nephrolithiasis [Unknown]
  - Escherichia infection [Unknown]
  - Nasopharyngitis [Unknown]
  - Malaise [Unknown]
  - Gastrointestinal disorder [Unknown]
  - Product use in unapproved indication [Unknown]

NARRATIVE: CASE EVENT DATE: 2012
